FAERS Safety Report 10588644 (Version 2)
Quarter: 2014Q4

REPORT INFORMATION
  Report Type: Spontaneous
  Country: US (occurrence: US)
  Receive Date: 20141117
  Receipt Date: 20141124
  Transmission Date: 20150529
  Serious: Yes (Other)
  Sender: FDA-Public Use
  Company Number: US-ABBVIE-14P-163-1308157-00

PATIENT
  Sex: Female

DRUGS (2)
  1. RIBAVIRIN. [Suspect]
     Active Substance: RIBAVIRIN
     Indication: HEPATITIS C
     Dosage: 3 SHOTS
     Route: 050
  2. INTERFERON NOS [Concomitant]
     Active Substance: INTERFERON
     Indication: HEPATITIS C
     Dosage: 3 SHOTS

REACTIONS (2)
  - Pain [Unknown]
  - Internal haemorrhage [Unknown]
